FAERS Safety Report 4733548-0 (Version None)
Quarter: 2005Q3

REPORT INFORMATION
  Report Type: 
  Country: None (occurrence: None)
  Receive Date: 20050729
  Receipt Date: 20050720
  Transmission Date: 20060218
  Serious: Yes (Hospitalization)
  Sender: FDA-Public Use
  Company Number: 2005-07-1262

PATIENT
  Age: 49 Year
  Sex: Male
  Weight: 56 kg

DRUGS (4)
  1. INTRON A [Suspect]
     Indication: CARCINOID TUMOUR
     Dosage: 1.5 MIU 5XWK SUBCUTANEOU
     Route: 058
     Dates: start: 19950301, end: 20041001
  2. PANKREON [Concomitant]
  3. SANDOSTATIN [Concomitant]
  4. BEHEPAN [Concomitant]

REACTIONS (15)
  - ANOREXIA [None]
  - DIARRHOEA [None]
  - FATIGUE [None]
  - FEELING ABNORMAL [None]
  - FLANK PAIN [None]
  - GLOMERULAR FILTRATION RATE DECREASED [None]
  - GRANULOMA [None]
  - HAEMOGLOBIN INCREASED [None]
  - HYDRONEPHROSIS [None]
  - NEPHRITIS INTERSTITIAL [None]
  - PAROTID GLAND ENLARGEMENT [None]
  - RENAL IMPAIRMENT [None]
  - SARCOIDOSIS [None]
  - URETERAL DISORDER [None]
  - WEIGHT DECREASED [None]
